FAERS Safety Report 23167214 (Version 1)
Quarter: 2023Q4

REPORT INFORMATION
  Report Type: Spontaneous
  Country: US (occurrence: US)
  Receive Date: 20231109
  Receipt Date: 20231109
  Transmission Date: 20240110
  Serious: Yes (Other)
  Sender: FDA-Public Use
  Company Number: US-PFIZER INC-202300357071

PATIENT
  Age: 88 Year
  Sex: Male

DRUGS (2)
  1. VYNDAMAX [Suspect]
     Active Substance: TAFAMIDIS
     Dosage: TAKE ONE OF THE RED CAPSULES EVERY MORNING
  2. ENTRESTO [Concomitant]
     Active Substance: SACUBITRIL\VALSARTAN
     Indication: Cardiac disorder
     Dosage: TAKE A HALF A PILL IN THE EVENING OF THAT ONE

REACTIONS (2)
  - Fall [Unknown]
  - Lower limb fracture [Unknown]

NARRATIVE: CASE EVENT DATE: 20231017
